FAERS Safety Report 4984900-X (Version None)
Quarter: 2006Q2

REPORT INFORMATION
  Report Type: 
  Country: None (occurrence: None)
  Receive Date: 20060426
  Receipt Date: 20060426
  Transmission Date: 20061013
  Serious: Yes (Life-Threatening, Hospitalization, Other)
  Sender: FDA-Public Use
  Company Number: None

PATIENT
  Age: 49 Year
  Sex: Female
  Weight: 98.4 kg

DRUGS (8)
  1. INFLIXIMAB  100MG/ 20ML  CENTOCOR [Suspect]
     Indication: RHEUMATOID ARTHRITIS
     Dosage: 3 MG/KG EVERY 2 WEEKS IV DRIP
     Route: 041
     Dates: start: 20050527, end: 20050610
  2. METHOTREXATE [Concomitant]
  3. FOLIC ACID [Concomitant]
  4. ETODOLAC [Concomitant]
  5. FLUTICASONE/SALMETEROL [Concomitant]
  6. LISINOPRIL AND HYDROCHLOROTHIAZIDE [Concomitant]
  7. PREDNISONE [Concomitant]
  8. ALENDRONATE SODIUM [Concomitant]

REACTIONS (6)
  - CHEST PAIN [None]
  - DYSPNOEA [None]
  - HYPERHIDROSIS [None]
  - INFUSION RELATED REACTION [None]
  - OXYGEN SATURATION DECREASED [None]
  - URTICARIA [None]
